FAERS Safety Report 9807937 (Version 3)
Quarter: 2014Q1

REPORT INFORMATION
  Report Type: Spontaneous
  Country: BR (occurrence: BR)
  Receive Date: 20140110
  Receipt Date: 20140324
  Transmission Date: 20141002
  Serious: Yes (Hospitalization, Other)
  Sender: FDA-Public Use
  Company Number: BR-PFIZER INC-2014005937

PATIENT
  Age: 64 Year
  Sex: Female

DRUGS (1)
  1. SUTENT [Suspect]
     Indication: RENAL CELL CARCINOMA
     Dosage: 50 MG (ONE CAPSULE), ONCE DAILY CYCLIC (4 PER 2)
     Route: 048
     Dates: start: 20130515, end: 201311

REACTIONS (6)
  - Cardiac failure [Unknown]
  - Drug-induced liver injury [Unknown]
  - Local swelling [Unknown]
  - Heart rate decreased [Unknown]
  - Yellow skin [Unknown]
  - Eye swelling [Unknown]
